FAERS Safety Report 6344841-2 (Version None)
Quarter: 2009Q3

REPORT INFORMATION
  Report Type: 
  Country: None (occurrence: None)
  Receive Date: 20090904
  Receipt Date: 20090721
  Transmission Date: 20100115
  Serious: Yes (Hospitalization)
  Sender: FDA-Public Use
  Company Number: AVE_00729_2009

PATIENT
  Age: 37 Year
  Sex: Female

DRUGS (3)
  1. NICOTINE [Suspect]
     Indication: SMOKING CESSATION THERAPY
     Dosage: (21 MG QD TRANSDERMAL)
     Route: 062
     Dates: start: 20090711, end: 20090717
  2. ATENOLOL [Suspect]
     Indication: BLOOD PRESSURE INCREASED
     Dosage: (12.5 MG QD ORAL)
     Route: 048
     Dates: start: 20090501
  3. ATENOLOL [Suspect]
     Indication: HEART RATE INCREASED
     Dosage: (12.5 MG QD ORAL)
     Route: 048
     Dates: start: 20090501

REACTIONS (4)
  - BLOOD PRESSURE INCREASED [None]
  - HEADACHE [None]
  - HEART RATE INCREASED [None]
  - IRRITABILITY [None]
